FAERS Safety Report 8845444 (Version 2)
Quarter: 2013Q1

REPORT INFORMATION
  Report Type: Spontaneous
  Country: US (occurrence: US)
  Receive Date: 20121017
  Receipt Date: 20130117
  Transmission Date: 20140127
  Serious: No
  Sender: FDA-Public Use
  Company Number: US-PFIZER INC-2012254530

PATIENT
  Age: 59 Year
  Sex: Female
  Weight: 154 kg

DRUGS (4)
  1. TOVIAZ [Suspect]
     Indication: URINARY INCONTINENCE
     Dosage: 4 MG, DAILY
     Dates: start: 2010, end: 20130108
  2. TOVIAZ [Suspect]
     Dosage: 8 MG A DAY (2 TABS ONCE DAILY)
     Dates: start: 20130108
  3. ZOLOFT [Concomitant]
     Indication: DEPRESSED MOOD
     Dosage: 50 MG, DAILY
     Dates: start: 2009
  4. ZOLOFT [Concomitant]
     Indication: DEPRESSION
     Dosage: 100 MG, DAILY

REACTIONS (2)
  - Urinary incontinence [Unknown]
  - Drug ineffective [Unknown]
